FAERS Safety Report 14675704 (Version 2)
Quarter: 2018Q3

REPORT INFORMATION
  Report Type: Spontaneous
  Country: US (occurrence: US)
  Receive Date: 20180323
  Receipt Date: 20180814
  Transmission Date: 20181010
  Serious: Yes (Life-Threatening, Other)
  Sender: FDA-Public Use
  Company Number: US-DRREDDYS-USA/USA/18/0096971

PATIENT
  Age: 56 Year
  Sex: Female

DRUGS (5)
  1. ACETYLCYSTEINE. [Suspect]
     Active Substance: ACETYLCYSTEINE
     Indication: LIVER INJURY
     Route: 065
  2. LACTULOSE. [Suspect]
     Active Substance: LACTULOSE
     Indication: LIVER INJURY
     Route: 065
  3. PANTOPRAZOLE SODIUM DR TABLETS 20MG AND  40MG [Suspect]
     Active Substance: PANTOPRAZOLE SODIUM
     Indication: LIVER INJURY
     Route: 065
  4. RIFAMIXIN [Suspect]
     Active Substance: RIFAXIMIN
     Indication: LIVER INJURY
     Route: 065
  5. VITAMIN K [Suspect]
     Active Substance: PHYTONADIONE
     Indication: LIVER INJURY
     Route: 065

REACTIONS (4)
  - Seizure [Unknown]
  - Drug ineffective [Unknown]
  - Subarachnoid haemorrhage [Unknown]
  - Brain oedema [Unknown]
